FAERS Safety Report 9498460 (Version 2)
Quarter: 2013Q4

REPORT INFORMATION
  Report Type: Spontaneous
  Country: GR (occurrence: GR)
  Receive Date: 20130904
  Receipt Date: 20131107
  Transmission Date: 20140711
  Serious: Yes (Other)
  Sender: FDA-Public Use
  Company Number: GR-SPECTRUM PHARMACEUTICALS, INC.-13-F-GR-00230

PATIENT
  Age: 70 Year
  Sex: Female

DRUGS (3)
  1. FLUOROURACIL [Suspect]
     Indication: BREAST CANCER
     Dosage: 600 MG/M2, EVERY 21 DAYS TIMES 6 CYCLES
     Route: 042
  2. EPIRUBICIN [Suspect]
     Indication: BREAST CANCER
     Dosage: 60-90 MG/M2, EVERY 21 DAYS TIMES 6 CYCLES
     Route: 042
  3. CYCLOPHOSPHAMIDE [Suspect]
     Indication: BREAST CANCER
     Dosage: 600 MG/M2, EVERY 21 DAYS TIMES 6 CYCLES
     Route: 042

REACTIONS (9)
  - Punctate keratitis [Recovered/Resolved]
  - Blepharitis [Recovered/Resolved]
  - Meibomian gland dysfunction [Recovered/Resolved]
  - Conjunctival hyperaemia [Recovered/Resolved]
  - Eyelid disorder [Unknown]
  - Madarosis [Unknown]
  - Dacryostenosis acquired [Unknown]
  - Oedema mucosal [Unknown]
  - Inflammation of lacrimal passage [Unknown]
